FAERS Safety Report 16092853 (Version 2)
Quarter: 2019Q1

REPORT INFORMATION
  Report Type: Spontaneous
  Country: US (occurrence: US)
  Receive Date: 20190320
  Receipt Date: 20190329
  Transmission Date: 20190418
  Serious: Yes (Other)
  Sender: FDA-Public Use
  Company Number: US-ELI_LILLY_AND_COMPANY-US201903000629

PATIENT
  Sex: Male
  Weight: 48.53 kg

DRUGS (4)
  1. LONSURF [Suspect]
     Active Substance: TIPIRACIL HYDROCHLORIDE\TRIFLURIDINE
     Indication: RECTAL CANCER
     Dosage: 15 MG, BID
     Route: 048
     Dates: start: 20181113
  2. LYNPARZA [Concomitant]
     Active Substance: OLAPARIB
     Indication: PRODUCT USED FOR UNKNOWN INDICATION
  3. ERBITUX [Suspect]
     Active Substance: CETUXIMAB
     Indication: PRODUCT USED FOR UNKNOWN INDICATION
     Dosage: UNK UNK, UNKNOWN
     Route: 065
  4. LONSURF [Suspect]
     Active Substance: TIPIRACIL HYDROCHLORIDE\TRIFLURIDINE
     Dosage: UNK UNK, UNKNOWN
     Route: 048

REACTIONS (6)
  - Eye discharge [Unknown]
  - Dry eye [Unknown]
  - Malignant neoplasm progression [Unknown]
  - Blood potassium increased [Recovered/Resolved]
  - Dry mouth [Not Recovered/Not Resolved]
  - Nasal dryness [Unknown]
